FAERS Safety Report 25791295 (Version 1)
Quarter: 2025Q3

REPORT INFORMATION
  Report Type: Spontaneous
  Country: JP (occurrence: JP)
  Receive Date: 20250911
  Receipt Date: 20250911
  Transmission Date: 20251021
  Serious: Yes (Other)
  Sender: SANOFI AVENTIS
  Company Number: JP-DialogSolutions-SAAVPROD-PI819663-C1

PATIENT
  Age: 42 Year
  Sex: Male

DRUGS (1)
  1. DUPILUMAB [Suspect]
     Active Substance: DUPILUMAB
     Indication: Asthma

REACTIONS (4)
  - Eosinophilic granulomatosis with polyangiitis [Unknown]
  - Pyrexia [Unknown]
  - Arthralgia [Unknown]
  - Eosinophilia [Unknown]
